FAERS Safety Report 17479166 (Version 2)
Quarter: 2021Q3

REPORT INFORMATION
  Report Type: Spontaneous
  Country: ES (occurrence: ES)
  Receive Date: 20200229
  Receipt Date: 20210825
  Transmission Date: 20211014
  Serious: Yes (Hospitalization, Other)
  Sender: FDA-Public Use
  Company Number: ES-MACLEODS PHARMACEUTICALS US LTD-MAC2020025405

PATIENT

DRUGS (1)
  1. OLMESARTAN TABLET [Suspect]
     Active Substance: OLMESARTAN
     Indication: HYPERTENSION
     Dosage: UNK
     Route: 065

REACTIONS (3)
  - Iron deficiency anaemia [Unknown]
  - Gastritis [Recovered/Resolved]
  - Sprue-like enteropathy [Recovered/Resolved]
